FAERS Safety Report 10147452 (Version 1)
Quarter: 2014Q2

REPORT INFORMATION
  Report Type: Spontaneous
  Country: IN (occurrence: IN)
  Receive Date: 20140501
  Receipt Date: 20140501
  Transmission Date: 20141212
  Serious: Yes (Other)
  Sender: FDA-Public Use
  Company Number: IN-WATSON-2014-08470

PATIENT
  Age: 35 Year
  Sex: Female

DRUGS (1)
  1. TRELSTAR UNKNOWN STRENGTH (WATSON LABORATORIES) [Suspect]
     Indication: ENDOMETRIOSIS
     Dosage: UNK, UNKNOWN
     Route: 030

REACTIONS (5)
  - Hot flush [Unknown]
  - Oedema peripheral [Unknown]
  - Malaise [Unknown]
  - Lethargy [Unknown]
  - Fatigue [Unknown]
